FAERS Safety Report 8128139-8 (Version None)
Quarter: 2011Q4

REPORT INFORMATION
  Report Type: 
  Country: None (occurrence: None)
  Receive Date: 20111227
  Receipt Date: 20110902
  Transmission Date: 20120403
  Serious: No
  Sender: FDA-Public Use
  Company Number: PHHY2011US61535

PATIENT
  Age: 36 Year
  Sex: Male

DRUGS (3)
  1. GILENYA [Suspect]
     Indication: MULTIPLE SCLEROSIS
     Dosage: 0.5 MG, QD, ORAL
     Route: 048
     Dates: start: 20110601, end: 20110701
  2. CITALOPRAM HYDROBROMIDE [Concomitant]
  3. PRILOSEC [Concomitant]

REACTIONS (5)
  - ASTHENIA [None]
  - VISION BLURRED [None]
  - HYPOAESTHESIA [None]
  - FATIGUE [None]
  - VISUAL IMPAIRMENT [None]
